FAERS Safety Report 9087733 (Version 1)
Quarter: 2013Q1

REPORT INFORMATION
  Report Type: Spontaneous
  Country: US (occurrence: US)
  Receive Date: 20130201
  Receipt Date: 20130201
  Transmission Date: 20140127
  Serious: Yes (Other)
  Sender: FDA-Public Use
  Company Number: US-JNJFOC-20130113047

PATIENT
  Sex: 0

DRUGS (3)
  1. CLADRIBINE [Suspect]
     Indication: MANTLE CELL LYMPHOMA
     Dosage: ON DAY 1-5 OF 28 DAY CYCLE
     Route: 042
  2. RITUXIMAB [Suspect]
     Indication: MANTLE CELL LYMPHOMA
     Dosage: ON DAY 1
     Route: 042
  3. TEMSIROLIMUS [Suspect]
     Indication: MANTLE CELL LYMPHOMA
     Dosage: ON DAYS 1, 8,15, AND 22
     Route: 042

REACTIONS (8)
  - Thrombocytopenia [Unknown]
  - Neutropenia [Unknown]
  - Thrombocytopenia [Unknown]
  - Neutropenia [Unknown]
  - Thrombosis [Unknown]
  - Anaemia [Unknown]
  - Lymphopenia [Unknown]
  - Pneumonitis [Unknown]
